FAERS Safety Report 7302611-2 (Version None)
Quarter: 2011Q1

REPORT INFORMATION
  Report Type: 
  Country: None (occurrence: None)
  Receive Date: 20110218
  Receipt Date: 20110214
  Transmission Date: 20110831
  Serious: Yes (Death, Other)
  Sender: FDA-Public Use
  Company Number: GB-ABBOTT-09P-167-0600947-00

PATIENT
  Sex: Female
  Weight: 99 kg

DRUGS (12)
  1. HUMIRA [Suspect]
     Indication: RHEUMATOID ARTHRITIS
     Route: 058
     Dates: start: 20070119
  2. ASPIRIN [Concomitant]
     Indication: LUNG DISORDER
     Dosage: BASELINE 13-NOV-2003
  3. LEVOTHYROXINE SODIUM [Concomitant]
     Indication: PRODUCT USED FOR UNKNOWN INDICATION
     Dosage: BASELINE 13-NOV-2003
  4. OMEPRAZOLE [Concomitant]
     Indication: PRODUCT USED FOR UNKNOWN INDICATION
  5. FUROSEMIDE [Concomitant]
     Indication: PRODUCT USED FOR UNKNOWN INDICATION
  6. NABUMETONE [Concomitant]
     Indication: LUNG DISORDER
     Dosage: MANE 500 MG; NOCTE 1000 MG
  7. UNSPECIFIED STEROIDS [Concomitant]
     Indication: LUNG DISORDER
  8. RISEDRONATE [Concomitant]
     Indication: PRODUCT USED FOR UNKNOWN INDICATION
  9. LEVOTHYROXINE [Concomitant]
     Indication: PRODUCT USED FOR UNKNOWN INDICATION
  10. PREDNISOLONE [Concomitant]
     Indication: PRODUCT USED FOR UNKNOWN INDICATION
  11. HRT [Concomitant]
     Indication: PRODUCT USED FOR UNKNOWN INDICATION
     Dosage: BASELINE 13-NOV-2003
  12. TRAMADOL HCL [Concomitant]
     Indication: PRODUCT USED FOR UNKNOWN INDICATION
     Dosage: BASELINE 13-NOV-2003

REACTIONS (12)
  - PERITONITIS [None]
  - DYSPNOEA [None]
  - ABDOMINAL ABSCESS [None]
  - ABDOMINAL PAIN [None]
  - INTESTINAL ISCHAEMIA [None]
  - HODGKIN'S DISEASE [None]
  - CONSTIPATION [None]
  - ABDOMINAL TENDERNESS [None]
  - MYOCARDIAL INFARCTION [None]
  - DUODENAL ULCER PERFORATION [None]
  - INTERSTITIAL LUNG DISEASE [None]
  - PYREXIA [None]
